FAERS Safety Report 5524294-4 (Version None)
Quarter: 2007Q4

REPORT INFORMATION
  Report Type: 
  Country: None (occurrence: None)
  Receive Date: 20071121
  Receipt Date: 20071109
  Transmission Date: 20080405
  Serious: Yes (Hospitalization)
  Sender: FDA-Public Use
  Company Number: JP-PFIZER INC-2007093002

PATIENT
  Age: 56 Year
  Sex: Female

DRUGS (3)
  1. ZITHROMAX [Suspect]
     Indication: NASOPHARYNGITIS
     Route: 048
     Dates: start: 20071029, end: 20071031
  2. ALL OTHER THERAPEUTIC PRODUCTS [Concomitant]
     Indication: NASOPHARYNGITIS
     Route: 048
     Dates: start: 20071029, end: 20071031
  3. LIVALO [Concomitant]
     Route: 048

REACTIONS (1)
  - RHABDOMYOLYSIS [None]
